FAERS Safety Report 16782377 (Version 1)
Quarter: 2019Q3

REPORT INFORMATION
  Report Type: Spontaneous
  Country: ES (occurrence: ES)
  Receive Date: 20190906
  Receipt Date: 20190906
  Transmission Date: 20191005
  Serious: Yes (Death, Hospitalization)
  Sender: FDA-Public Use
  Company Number: ES-MYLANLABS-2019M1083571

PATIENT
  Sex: Male

DRUGS (3)
  1. LINEZOLID. [Suspect]
     Active Substance: LINEZOLID
     Indication: PRODUCT USED FOR UNKNOWN INDICATION
     Dosage: UNK
     Route: 065
     Dates: start: 20190126
  2. PENICILINA G /00000903/ [Suspect]
     Active Substance: PENICILLIN G SODIUM
     Indication: PRODUCT USED FOR UNKNOWN INDICATION
     Dosage: UNK
     Route: 065
     Dates: start: 20190126
  3. COSENTYX [Suspect]
     Active Substance: SECUKINUMAB
     Indication: PSORIATIC ARTHROPATHY
     Dosage: 150 MILLIGRAM, QW (150 MG, QW)
     Route: 058
     Dates: start: 201808

REACTIONS (6)
  - Streptococcus test positive [Fatal]
  - Hypotension [Fatal]
  - Bradycardia [Fatal]
  - Sepsis [Fatal]
  - Necrotising fasciitis [Fatal]
  - Multiple organ dysfunction syndrome [Fatal]
